FAERS Safety Report 8386120-8 (Version None)
Quarter: 2012Q2

REPORT INFORMATION
  Report Type: 
  Country: None (occurrence: None)
  Receive Date: 20120523
  Receipt Date: 20120514
  Transmission Date: 20120825
  Serious: Yes (Other)
  Sender: FDA-Public Use
  Company Number: NSR_00554_2012

PATIENT
  Age: 70 Year
  Sex: Female
  Weight: 49.8957 kg

DRUGS (3)
  1. TYLENOL /00020001/ (UNKNOWN) [Concomitant]
  2. METOCLOPRAMIDE [Suspect]
     Indication: ABDOMINAL PAIN UPPER
     Dosage: (5 MG 1X ORAL)
     Route: 048
     Dates: start: 20120509, end: 20120509
  3. ALEVE (UNKNOWN) [Concomitant]

REACTIONS (6)
  - HEADACHE [None]
  - ABDOMINAL PAIN UPPER [None]
  - OFF LABEL USE [None]
  - PRURITUS [None]
  - CHEST DISCOMFORT [None]
  - PHARYNGEAL OEDEMA [None]
